FAERS Safety Report 17399268 (Version 4)
Quarter: 2022Q1

REPORT INFORMATION
  Report Type: Spontaneous
  Country: CA (occurrence: CA)
  Receive Date: 20200211
  Receipt Date: 20220221
  Transmission Date: 20220423
  Serious: Yes (Other)
  Sender: FDA-Public Use
  Company Number: CA-AUROBINDO-AUR-APL-2020-006262

PATIENT
  Age: 59 Year
  Sex: Female

DRUGS (53)
  1. CITALOPRAM [Suspect]
     Active Substance: CITALOPRAM HYDROBROMIDE
     Indication: Depression
     Dosage: UNK
     Route: 065
  2. CITALOPRAM [Suspect]
     Active Substance: CITALOPRAM HYDROBROMIDE
     Dosage: 20 MILLIGRAM
     Route: 016
  3. FLUOXETINE [Suspect]
     Active Substance: FLUOXETINE HYDROCHLORIDE
     Indication: Migraine
     Dosage: UNK
     Route: 016
  4. FLUOXETINE [Suspect]
     Active Substance: FLUOXETINE HYDROCHLORIDE
     Dosage: 30 MILLIGRAM
     Route: 065
  5. FLUOXETINE [Suspect]
     Active Substance: FLUOXETINE HYDROCHLORIDE
     Dosage: 10 MILLIGRAM
     Route: 065
  6. FLUOXETINE [Suspect]
     Active Substance: FLUOXETINE HYDROCHLORIDE
     Dosage: 10 MILLIGRAM
     Route: 065
  7. FLUOXETINE [Suspect]
     Active Substance: FLUOXETINE HYDROCHLORIDE
     Dosage: UNK
  8. AIMOVIG [Suspect]
     Active Substance: ERENUMAB-AOOE
     Indication: Migraine
     Dosage: UNK
     Route: 005
  9. CODEINE [Suspect]
     Active Substance: CODEINE
     Indication: Migraine
     Dosage: 100 MILLIGRAM
     Route: 065
  10. DEXAMETHASONE [Suspect]
     Active Substance: DEXAMETHASONE
     Indication: Migraine
     Dosage: 4 MILLIGRAM
     Route: 065
  11. DICLOFENAC [Suspect]
     Active Substance: DICLOFENAC
     Indication: Migraine
     Dosage: 75 MILLIGRAM
     Route: 065
  12. DICLOFENAC [Suspect]
     Active Substance: DICLOFENAC
     Dosage: UNK
     Route: 065
  13. EFFEXOR [Suspect]
     Active Substance: VENLAFAXINE HYDROCHLORIDE
     Indication: Depression
     Dosage: UNK
     Route: 065
  14. MORPHINE [Suspect]
     Active Substance: MORPHINE
     Indication: Migraine
     Dosage: 5 MILLIGRAM
     Route: 065
  15. IMITREX [Suspect]
     Active Substance: SUMATRIPTAN SUCCINATE
     Indication: Migraine
     Dosage: 100 MILLIGRAM
     Route: 065
  16. VORTIOXETINE HYDROBROMIDE [Suspect]
     Active Substance: VORTIOXETINE HYDROBROMIDE
     Indication: Depression
     Dosage: UNK
     Route: 065
  17. WELLBUTRIN [Suspect]
     Active Substance: BUPROPION HYDROCHLORIDE
     Indication: Depression
     Dosage: 100 MILLIGRAM
     Route: 065
  18. WELLBUTRIN [Suspect]
     Active Substance: BUPROPION HYDROCHLORIDE
     Dosage: 150 MILLIGRAM
     Route: 005
  19. WELLBUTRIN [Suspect]
     Active Substance: BUPROPION HYDROCHLORIDE
     Indication: Product used for unknown indication
     Dosage: 100 MILLIGRAM
     Route: 065
  20. WELLBUTRIN [Suspect]
     Active Substance: BUPROPION HYDROCHLORIDE
     Indication: Depression
     Dosage: 150 MILLIGRAM
     Route: 065
  21. BUPROPION HYDROBROMIDE [Suspect]
     Active Substance: BUPROPION HYDROBROMIDE
     Indication: Product used for unknown indication
     Dosage: 150 MILLIGRAM
     Route: 065
  22. SUMATRIPTAN SUCCINATE [Suspect]
     Active Substance: SUMATRIPTAN SUCCINATE
     Indication: Migraine
     Dosage: 100 MILLIGRAM
     Route: 065
  23. SUMATRIPTAN SUCCINATE [Suspect]
     Active Substance: SUMATRIPTAN SUCCINATE
     Dosage: 100 MILLIGRAM, ONCE A DAY
  24. VENLAFAXINE HYDROCHLORIDE [Suspect]
     Active Substance: VENLAFAXINE HYDROCHLORIDE
     Indication: Product used for unknown indication
     Dosage: 37.5 MILLIGRAM
     Route: 016
  25. VENLAFAXINE HYDROCHLORIDE [Suspect]
     Active Substance: VENLAFAXINE HYDROCHLORIDE
     Dosage: UNK
     Route: 065
  26. ABILIFY [Concomitant]
     Active Substance: ARIPIPRAZOLE
     Indication: Product used for unknown indication
     Dosage: 5 MILLIGRAM
     Route: 016
  27. ALLOPURINOL [Concomitant]
     Active Substance: ALLOPURINOL
     Indication: Product used for unknown indication
     Dosage: 25 MILLIGRAM
     Route: 065
  28. BACLOFEN [Concomitant]
     Active Substance: BACLOFEN
     Indication: Product used for unknown indication
     Dosage: 10 MILLIGRAM
     Route: 065
  29. BETAMETHASONE DIPROPIONATE;SALICYLIC ACID [Concomitant]
     Indication: Product used for unknown indication
     Dosage: UNK
     Route: 065
  30. BOTULINUM TOXIN TYPE A [Concomitant]
     Active Substance: BOTULINUM TOXIN TYPE A
     Indication: Product used for unknown indication
     Dosage: 200 INTERNATIONAL UNIT
     Route: 042
  31. BOTULINUM TOXIN TYPE A [Concomitant]
     Active Substance: BOTULINUM TOXIN TYPE A
     Dosage: 100 INTERNATIONAL UNIT
     Route: 042
  32. CIPRALEX [Concomitant]
     Active Substance: ESCITALOPRAM OXALATE
     Indication: Product used for unknown indication
     Dosage: UNK
     Route: 005
  33. CLONAZEPAM [Concomitant]
     Active Substance: CLONAZEPAM
     Indication: Product used for unknown indication
     Dosage: UNK
     Route: 016
  34. CYCLOBENZAPRINE [Concomitant]
     Active Substance: CYCLOBENZAPRINE
     Indication: Product used for unknown indication
     Dosage: UNK
     Route: 065
  35. CYMBALTA [Concomitant]
     Active Substance: DULOXETINE HYDROCHLORIDE
     Indication: Product used for unknown indication
     Dosage: UNK
     Route: 016
  36. ELAVIL [Concomitant]
     Active Substance: AMITRIPTYLINE HYDROCHLORIDE
     Indication: Product used for unknown indication
     Dosage: 25 MILLIGRAM
     Route: 065
  37. GABAPENTIN [Concomitant]
     Active Substance: GABAPENTIN
     Indication: Migraine
     Dosage: 100 MILLIGRAM
     Route: 065
  38. IMOVANE [Concomitant]
     Active Substance: ZOPICLONE
     Indication: Product used for unknown indication
     Dosage: UNK
     Route: 005
  39. LAMOTRIGINE [Concomitant]
     Active Substance: LAMOTRIGINE
     Indication: Product used for unknown indication
     Dosage: UNK
     Route: 065
  40. LITHIUM [Concomitant]
     Active Substance: LITHIUM
     Indication: Product used for unknown indication
     Dosage: 150 MILLIGRAM
     Route: 065
  41. LYRICA [Concomitant]
     Active Substance: PREGABALIN
     Indication: Product used for unknown indication
     Dosage: 75 MILLIGRAM
     Route: 005
  42. NAPROXEN [Concomitant]
     Active Substance: NAPROXEN
     Indication: Product used for unknown indication
     Dosage: 375 MILLIGRAM
     Route: 065
  43. NORFLEX [Concomitant]
     Active Substance: ORPHENADRINE CITRATE
     Indication: Product used for unknown indication
     Dosage: 100 MILLIGRAM
     Route: 065
  44. PAROXETINE HYDROCHLORIDE [Concomitant]
     Active Substance: PAROXETINE HYDROCHLORIDE
     Indication: Product used for unknown indication
     Dosage: UNK
     Route: 065
  45. PREDNISONE [Concomitant]
     Active Substance: PREDNISONE
     Indication: Product used for unknown indication
     Dosage: 50 MILLIGRAM
     Route: 065
  46. ZOPICLONE [Concomitant]
     Active Substance: ZOPICLONE
     Indication: Product used for unknown indication
     Dosage: 7.5 MILLIGRAM
     Route: 065
  47. TEMAZEPAM [Concomitant]
     Active Substance: TEMAZEPAM
     Indication: Product used for unknown indication
     Dosage: 15 MILLIGRAM
     Route: 016
  48. TOPAMAX [Concomitant]
     Active Substance: TOPIRAMATE
     Indication: Product used for unknown indication
     Dosage: 25 MILLIGRAM, TWO TIMES A DAY
     Route: 065
  49. TRAZODONE [Concomitant]
     Active Substance: TRAZODONE HYDROCHLORIDE
     Indication: Product used for unknown indication
     Dosage: 50 MILLIGRAM
     Route: 065
  50. TYLENOL [Concomitant]
     Active Substance: ACETAMINOPHEN
     Indication: Product used for unknown indication
     Dosage: 30 MILLIGRAM
     Route: 065
  51. ZOPICLONE [Concomitant]
     Active Substance: ZOPICLONE
     Indication: Product used for unknown indication
     Dosage: 7.5 MILLIGRAM, ONCE A DAY
     Route: 065
  52. ZOPICLONE [Concomitant]
     Active Substance: ZOPICLONE
     Dosage: 7.5 MILLIGRAM, ONCE A DAY
     Route: 065
  53. ACETAMINOPHEN [Concomitant]
     Active Substance: ACETAMINOPHEN
     Indication: Product used for unknown indication
     Dosage: 30 MILLIGRAM
     Route: 065

REACTIONS (39)
  - Body temperature increased [Unknown]
  - Anxiety [Unknown]
  - Dysgeusia [Unknown]
  - Concussion [Unknown]
  - Diarrhoea [Unknown]
  - Dyspepsia [Unknown]
  - Feeling hot [Unknown]
  - Flushing [Unknown]
  - Dizziness [Unknown]
  - Gastrooesophageal reflux disease [Unknown]
  - Headache [Unknown]
  - Hostility [Unknown]
  - Hyperhidrosis [Unknown]
  - Hypoaesthesia [Unknown]
  - Irritability [Unknown]
  - Libido increased [Unknown]
  - Memory impairment [Unknown]
  - Middle insomnia [Unknown]
  - Muscle twitching [Unknown]
  - Migraine [Unknown]
  - Nausea [Unknown]
  - Nightmare [Unknown]
  - Personality disorder [Unknown]
  - Poor quality sleep [Unknown]
  - Post-traumatic neck syndrome [Unknown]
  - Product use in unapproved indication [Unknown]
  - Rib fracture [Unknown]
  - Sedation [Unknown]
  - Soft tissue injury [Unknown]
  - Somnolence [Unknown]
  - Sternal fracture [Unknown]
  - Tremor [Unknown]
  - Vertigo [Unknown]
  - Weight decreased [Unknown]
  - Weight increased [Unknown]
  - Off label use [Unknown]
  - Contusion [Unknown]
  - Drug ineffective [Unknown]
  - Incorrect route of product administration [Unknown]
